FAERS Safety Report 15852668 (Version 1)
Quarter: 2019Q1

REPORT INFORMATION
  Report Type: Spontaneous
  Country: US (occurrence: US)
  Receive Date: 20190118
  Receipt Date: 20190118
  Transmission Date: 20190417
  Serious: Yes (Hospitalization, Disabling, Other)
  Sender: FDA-Public Use
  Company Number: None

PATIENT
  Age: 32 Year
  Sex: Male
  Weight: 83.25 kg

DRUGS (2)
  1. GINSING [Concomitant]
  2. ADDERALL [Suspect]
     Active Substance: AMPHETAMINE ASPARTATE\AMPHETAMINE SULFATE\DEXTROAMPHETAMINE SACCHARATE\DEXTROAMPHETAMINE SULFATE
     Indication: ATTENTION DEFICIT/HYPERACTIVITY DISORDER
     Dosage: ?          QUANTITY:9 TABLET(S);?
     Route: 048
     Dates: start: 19990331, end: 20181008

REACTIONS (8)
  - Vitamin C deficiency [None]
  - Drug tolerance [None]
  - Wrong technique in product usage process [None]
  - Attention deficit/hyperactivity disorder [None]
  - Treatment failure [None]
  - Pain [None]
  - Symptom recurrence [None]
  - Product quality issue [None]

NARRATIVE: CASE EVENT DATE: 20121210
